FAERS Safety Report 25834771 (Version 1)
Quarter: 2025Q3

REPORT INFORMATION
  Report Type: Spontaneous
  Country: RU (occurrence: RU)
  Receive Date: 20250923
  Receipt Date: 20250923
  Transmission Date: 20251020
  Serious: Yes (Other)
  Sender: BAUSCH AND LOMB
  Company Number: RU-MLMSERVICE-20221004-3834602-1

PATIENT
  Age: 16 Year
  Sex: Female

DRUGS (9)
  1. AZATHIOPRINE [Suspect]
     Active Substance: AZATHIOPRINE
     Indication: Immunosuppressant drug therapy
     Route: 065
  2. AZATHIOPRINE [Suspect]
     Active Substance: AZATHIOPRINE
     Indication: Colitis ulcerative
  3. MESALAMINE [Suspect]
     Active Substance: MESALAMINE
     Indication: Colitis ulcerative
     Route: 065
  4. MERCAPTOPURINE [Suspect]
     Active Substance: MERCAPTOPURINE
     Indication: Immunosuppressant drug therapy
     Route: 065
  5. MERCAPTOPURINE [Suspect]
     Active Substance: MERCAPTOPURINE
     Indication: Colitis ulcerative
  6. PREDNISONE [Concomitant]
     Active Substance: PREDNISONE
     Indication: Pulmonary eosinophilia
     Route: 065
  7. PREDNISONE [Concomitant]
     Active Substance: PREDNISONE
     Indication: Colitis ulcerative
  8. PREDNISONE [Concomitant]
     Active Substance: PREDNISONE
     Indication: Proctitis ulcerative
  9. PREDNISONE [Concomitant]
     Active Substance: PREDNISONE
     Indication: Eosinophilia

REACTIONS (2)
  - Leukopenia [Unknown]
  - Therapy partial responder [Unknown]
